FAERS Safety Report 8299899-0 (Version None)
Quarter: 2012Q2

REPORT INFORMATION
  Report Type: 
  Country: None (occurrence: None)
  Receive Date: 20120419
  Receipt Date: 20120413
  Transmission Date: 20120825
  Serious: Yes (Hospitalization)
  Sender: FDA-Public Use
  Company Number: CA-BRISTOL-MYERS SQUIBB COMPANY-16465924

PATIENT
  Age: 69 Year
  Sex: Male

DRUGS (3)
  1. PACLITAXEL [Suspect]
     Indication: NON-SMALL CELL LUNG CANCER
     Dosage: 200MG/M2 NO OF COURSE:1
     Route: 042
     Dates: start: 20120314, end: 20120314
  2. MDX-1106 [Suspect]
     Indication: NON-SMALL CELL LUNG CANCER
     Dosage: DOSE:720MG
     Route: 042
     Dates: start: 20120314, end: 20120314
  3. CARBOPLATIN [Suspect]
     Indication: NON-SMALL CELL LUNG CANCER
     Dosage: 6 AUC NO OF COURSE:1
     Route: 042
     Dates: start: 20120314, end: 20120314

REACTIONS (1)
  - CEREBROVASCULAR ACCIDENT [None]
